FAERS Safety Report 19725802 (Version 1)
Quarter: 2021Q3

REPORT INFORMATION
  Report Type: Not Available
  Country: US (occurrence: US)
  Receive Date: 20210819
  Receipt Date: 20210819
  Transmission Date: 20211014
  Serious: No
  Sender: FDA-Public Use
  Company Number: US-MANNKIND CORPORATION-2020MK000071

PATIENT
  Sex: Male

DRUGS (2)
  1. AFREZZA [Suspect]
     Active Substance: INSULIN HUMAN
  2. AFREZZA [Suspect]
     Active Substance: INSULIN HUMAN
     Indication: DIABETES MELLITUS
     Dosage: ADDITIONAL 8 U IF NEEDED

REACTIONS (4)
  - Malaise [Unknown]
  - Anxiety [Unknown]
  - Blood glucose fluctuation [Unknown]
  - Chest pain [Unknown]

NARRATIVE: CASE EVENT DATE: 202007
